FAERS Safety Report 18267204 (Version 3)
Quarter: 2020Q3

REPORT INFORMATION
  Report Type: Spontaneous
  Country: JP (occurrence: JP)
  Receive Date: 20200915
  Receipt Date: 20200917
  Transmission Date: 20201103
  Serious: Yes (Other)
  Sender: FDA-Public Use
  Company Number: JP-PFIZER INC-2020347398

PATIENT
  Age: 6 Month
  Sex: Male

DRUGS (2)
  1. MACITENTAN [Suspect]
     Active Substance: MACITENTAN
     Dosage: UNK
  2. SILDENAFIL CITRATE. [Suspect]
     Active Substance: SILDENAFIL CITRATE
     Indication: PULMONARY ARTERIAL HYPERTENSION
     Dosage: UNK

REACTIONS (6)
  - Drug ineffective for unapproved indication [Unknown]
  - Interstitial lung disease [Recovering/Resolving]
  - Off label use [Unknown]
  - Product use issue [Unknown]
  - Product use in unapproved indication [Unknown]
  - Pulmonary alveolar haemorrhage [Recovering/Resolving]
